FAERS Safety Report 5380039-2 (Version None)
Quarter: 2007Q3

REPORT INFORMATION
  Report Type: 
  Country: None (occurrence: None)
  Receive Date: 20070706
  Receipt Date: 20070626
  Transmission Date: 20080115
  Serious: Yes (Other)
  Sender: FDA-Public Use
  Company Number: JP-AVENTIS-200711673JP

PATIENT
  Age: 54 Year
  Sex: Male
  Weight: 52 kg

DRUGS (5)
  1. TAXOTERE [Suspect]
     Route: 041
     Dates: start: 20070618, end: 20070618
  2. DECADRON [Suspect]
     Route: 041
     Dates: start: 20070507, end: 20070618
  3. DECADRON [Suspect]
     Route: 041
     Dates: start: 20070507, end: 20070618
  4. KYTRIL                             /01178101/ [Concomitant]
     Route: 042
  5. ZANTAC [Concomitant]
     Route: 042

REACTIONS (1)
  - AMNESIA [None]
